FAERS Safety Report 7967885-3 (Version None)
Quarter: 2011Q4

REPORT INFORMATION
  Report Type: 
  Country: None (occurrence: None)
  Receive Date: 20111122
  Receipt Date: 20110809
  Transmission Date: 20120403
  Serious: No
  Sender: FDA-Public Use
  Company Number: PHHY2011US64761

PATIENT
  Age: 33 Year
  Sex: Male
  Weight: 66 kg

DRUGS (6)
  1. OXCARBAZEPINE [Concomitant]
  2. PROVIGIL [Concomitant]
  3. TRAZODONE HCL [Concomitant]
  4. LIPITOR [Concomitant]
  5. CYMBALTA [Concomitant]
  6. GILENYA [Suspect]
     Indication: MULTIPLE SCLEROSIS
     Dosage: 0.5MG, QD, ORAL
     Route: 048
     Dates: start: 20110503

REACTIONS (3)
  - TINNITUS [None]
  - PYREXIA [None]
  - CHILLS [None]
